FAERS Safety Report 8907665 (Version 2)
Quarter: 2012Q4

REPORT INFORMATION
  Report Type: 
  Country: US (occurrence: US)
  Receive Date: 20121114
  Receipt Date: 20121203
  Transmission Date: 20130627
  Serious: No
  Sender: FDA-Public Use
  Company Number: US-BIOGENIDEC-2012BI051844

PATIENT
  Age: 45 Year
  Sex: Female

DRUGS (1)
  1. TYSABRI [Suspect]
     Indication: MULTIPLE SCLEROSIS
     Route: 042
     Dates: start: 20120611

REACTIONS (4)
  - Road traffic accident [Recovered/Resolved]
  - Mass [Recovered/Resolved]
  - Headache [Not Recovered/Not Resolved]
  - Pharyngitis [Not Recovered/Not Resolved]
